FAERS Safety Report 20862682 (Version 1)
Quarter: 2022Q2

REPORT INFORMATION
  Report Type: Spontaneous
  Country: FR (occurrence: FR)
  Receive Date: 20220523
  Receipt Date: 20220523
  Transmission Date: 20220721
  Serious: Yes (Other)
  Sender: FDA-Public Use
  Company Number: None

PATIENT
  Age: 29 Year
  Sex: Male

DRUGS (3)
  1. PREGABALIN [Suspect]
     Active Substance: PREGABALIN
     Dosage: 6-7 TABLETS DAILY
     Route: 048
     Dates: start: 2015
  2. RIVOTRIL [Suspect]
     Active Substance: CLONAZEPAM
     Dosage: 3-4 /DAILY, A PRIORI FORMERLY CONSUMER
     Route: 048
  3. CANNABIS SATIVA SUBSP. INDICA TOP [Suspect]
     Active Substance: CANNABIS SATIVA SUBSP. INDICA TOP
     Dosage: 2-3 JOINTS DAILY
     Route: 055

REACTIONS (3)
  - Drug dependence [Unknown]
  - Drug abuse [Unknown]
  - Intentional product misuse [Unknown]

NARRATIVE: CASE EVENT DATE: 20150101
